FAERS Safety Report 4928970-3 (Version None)
Quarter: 2006Q1

REPORT INFORMATION
  Report Type: 
  Country: None (occurrence: None)
  Receive Date: 20060301
  Receipt Date: 20060220
  Transmission Date: 20060701
  Serious: Yes (Other)
  Sender: FDA-Public Use
  Company Number: GB-GLAXOSMITHKLINE-B0412853A

PATIENT
  Age: 65 Year
  Sex: Male
  Weight: 80 kg

DRUGS (1)
  1. ROPINIROLE [Suspect]
     Dosage: 5MG PER DAY
     Route: 048
     Dates: start: 20000204

REACTIONS (5)
  - ABDOMINAL PAIN [None]
  - DYSKINESIA [None]
  - NAUSEA [None]
  - NEUTROPHILIA [None]
  - OVERDOSE [None]
